FAERS Safety Report 25615559 (Version 1)
Quarter: 2025Q3

REPORT INFORMATION
  Report Type: Spontaneous
  Country: JP (occurrence: JP)
  Receive Date: 20250729
  Receipt Date: 20250729
  Transmission Date: 20251021
  Serious: Yes (Other)
  Sender: ROCHE
  Company Number: JP-CHUGAI-2025023930

PATIENT
  Age: 7 Decade

DRUGS (4)
  1. ACTEMRA [Suspect]
     Active Substance: TOCILIZUMAB
     Indication: Product used for unknown indication
     Route: 065
  2. IMDELLTRA [Suspect]
     Active Substance: TARLATAMAB-DLLE
     Indication: Small cell lung cancer recurrent
     Dosage: 1 MILLIGRAM, QD
     Route: 042
     Dates: start: 20250527, end: 20250527
  3. IMDELLTRA [Suspect]
     Active Substance: TARLATAMAB-DLLE
     Dosage: 1 MILLIGRAM, QD
     Route: 050
     Dates: start: 20250609, end: 20250609
  4. IMDELLTRA [Suspect]
     Active Substance: TARLATAMAB-DLLE
     Dosage: 1 MILLIGRAM, QD
     Route: 050
     Dates: start: 20250616

REACTIONS (2)
  - Cytokine release syndrome [Recovered/Resolved]
  - Neutrophil count decreased [Recovering/Resolving]
